FAERS Safety Report 9340279 (Version 1)
Quarter: 2013Q2

REPORT INFORMATION
  Report Type: Spontaneous
  Country: US (occurrence: None)
  Receive Date: 20130610
  Receipt Date: 20130610
  Transmission Date: 20140414
  Serious: Yes (Death, Life-Threatening, Hospitalization)
  Sender: FDA-Public Use
  Company Number: None

PATIENT
  Age: 43 Year
  Sex: Male
  Weight: 100 kg

DRUGS (3)
  1. LATUDA (LURASIDONE) 40MG TABLET [Suspect]
     Indication: SCHIZOAFFECTIVE DISORDER
     Route: 048
  2. LATUDA (LURASIDONE) 40MG TABLET [Suspect]
     Indication: BIPOLAR DISORDER
     Route: 048
  3. LATUDA (LURASIDONE) 40MG TABLET [Suspect]
     Indication: POST-TRAUMATIC STRESS DISORDER
     Route: 048

REACTIONS (9)
  - Unresponsive to stimuli [None]
  - Hyperhidrosis [None]
  - Pulse abnormal [None]
  - Hyperthermia [None]
  - Hypotension [None]
  - Respiratory failure [None]
  - Multi-organ failure [None]
  - Cardiac arrest [None]
  - Cardio-respiratory arrest [None]
